FAERS Safety Report 8516847-6 (Version None)
Quarter: 2012Q3

REPORT INFORMATION
  Report Type: 
  Country: None (occurrence: None)
  Receive Date: 20120718
  Receipt Date: 20120710
  Transmission Date: 20120928
  Serious: Yes (Death)
  Sender: FDA-Public Use
  Company Number: KR-MILLENNIUM PHARMACEUTICALS, INC.-2012-04460

PATIENT

DRUGS (1)
  1. VELCADE [Suspect]
     Indication: MULTIPLE MYELOMA
     Dosage: 1.3 MG/M2, UNK
     Route: 042
     Dates: start: 20110620, end: 20110919

REACTIONS (1)
  - DISEASE PROGRESSION [None]
